FAERS Safety Report 4429630-8 (Version None)
Quarter: 2004Q3

REPORT INFORMATION
  Report Type: 
  Country: None (occurrence: None)
  Receive Date: 20040816
  Receipt Date: 20040811
  Transmission Date: 20050211
  Serious: Yes (Death)
  Sender: FDA-Public Use
  Company Number: KII-1998-0005242

PATIENT
  Sex: Male

DRUGS (2)
  1. OXYCONTIN [Suspect]
     Indication: CANCER PAIN
     Dosage: 40 MG, BID
  2. PERCOCET [Suspect]
     Indication: CANCER PAIN

REACTIONS (2)
  - CONDITION AGGRAVATED [None]
  - PROSTATE CANCER METASTATIC [None]
